FAERS Safety Report 19465719 (Version 2)
Quarter: 2021Q2

REPORT INFORMATION
  Report Type: Spontaneous
  Country: US (occurrence: US)
  Receive Date: 20210626
  Receipt Date: 20210626
  Transmission Date: 20210717
  Serious: Yes (Other)
  Sender: FDA-Public Use
  Company Number: NVSC2021US139415

PATIENT
  Age: 43 Year
  Sex: Female

DRUGS (1)
  1. FINGOLIMOD. [Suspect]
     Active Substance: FINGOLIMOD
     Indication: RELAPSING MULTIPLE SCLEROSIS
     Dosage: UNK
     Route: 065
     Dates: start: 201512

REACTIONS (3)
  - Cyst [Unknown]
  - Cryptococcal cutaneous infection [Unknown]
  - Granulomatous dermatitis [Unknown]

NARRATIVE: CASE EVENT DATE: 2020
